FAERS Safety Report 10673832 (Version 2)
Quarter: 2014Q4

REPORT INFORMATION
  Report Type: Spontaneous
  Country: US (occurrence: US)
  Receive Date: 20141224
  Receipt Date: 20141226
  Transmission Date: 20150529
  Serious: Yes (Other)
  Sender: FDA-Public Use
  Company Number: US-JNJFOC-20141210317

PATIENT
  Age: 28 Year
  Sex: Male

DRUGS (2)
  1. RISPERDAL [Suspect]
     Active Substance: RISPERIDONE
     Indication: TOURETTE^S DISORDER
     Route: 048
  2. DOXYCYCLINE. [Concomitant]
     Active Substance: DOXYCYCLINE
     Indication: ACNE CYSTIC
     Route: 065

REACTIONS (4)
  - Metabolic acidosis [Not Recovered/Not Resolved]
  - Product use issue [Unknown]
  - Blood bicarbonate increased [Unknown]
  - Sinus tachycardia [Recovered/Resolved]
